FAERS Safety Report 18652302 (Version 2)
Quarter: 2022Q2

REPORT INFORMATION
  Report Type: Spontaneous
  Country: CA (occurrence: CA)
  Receive Date: 20201223
  Receipt Date: 20220403
  Transmission Date: 20220721
  Serious: Yes (Life-Threatening, Disabling, Other)
  Sender: FDA-Public Use
  Company Number: CA-SA-2020SA365334

PATIENT
  Age: 3 Year
  Sex: Female
  Weight: 11.6 kg

DRUGS (63)
  1. ALEMTUZUMAB [Suspect]
     Active Substance: ALEMTUZUMAB
     Indication: Bone marrow transplant
     Dosage: 2.3 MG
     Route: 042
  2. CYCLOPHOSPHAMIDE [Suspect]
     Active Substance: CYCLOPHOSPHAMIDE
     Indication: Bone marrow transplant
     Dosage: 156 MG
  3. CYCLOPHOSPHAMIDE [Suspect]
     Active Substance: CYCLOPHOSPHAMIDE
     Dosage: 120 MG
  4. FLUDARABINE PHOSPHATE [Suspect]
     Active Substance: FLUDARABINE PHOSPHATE
     Indication: Bone marrow transplant
     Dosage: 16 MG
     Route: 042
  5. FLUDARABINE PHOSPHATE [Suspect]
     Active Substance: FLUDARABINE PHOSPHATE
     Dosage: 16 MG
     Route: 042
  6. BUSULFAN [Suspect]
     Active Substance: BUSULFAN
     Indication: Bone marrow transplant
     Dosage: 50 MG
     Route: 042
  7. BUSULFAN [Suspect]
     Active Substance: BUSULFAN
     Dosage: 24 MG
     Route: 042
  8. ACETAMINOPHEN [Concomitant]
     Active Substance: ACETAMINOPHEN
  9. ACYCLOVIR [Concomitant]
     Active Substance: ACYCLOVIR
  10. ALTEPLASE [Concomitant]
     Active Substance: ALTEPLASE
  11. AMLODIPINE [Concomitant]
     Active Substance: AMLODIPINE BESYLATE
  12. AMPHOTERICIN B [Concomitant]
     Active Substance: AMPHOTERICIN B
  13. ATROPINE [Concomitant]
     Active Substance: ATROPINE
  14. BETAMETHASONE [Concomitant]
     Active Substance: BETAMETHASONE
     Route: 061
  15. CALCIUM [Concomitant]
     Active Substance: CALCIUM
  16. CEPHALEXIN [Concomitant]
     Active Substance: CEPHALEXIN
  17. CETIRIZINE [Concomitant]
     Active Substance: CETIRIZINE HYDROCHLORIDE
  18. CHLORHEXIDINE [Concomitant]
     Active Substance: CHLORHEXIDINE
  19. CHOLECALCIFEROL [Concomitant]
     Active Substance: CHOLECALCIFEROL
  20. CICLESONIDE [Concomitant]
     Active Substance: CICLESONIDE
  21. CLONIDINE [Concomitant]
     Active Substance: CLONIDINE
  22. CLOTRIMAZOLE [Concomitant]
     Active Substance: CLOTRIMAZOLE
  23. CYCLOSPORINE [Concomitant]
     Active Substance: CYCLOSPORINE
  24. DESONIDE [Concomitant]
     Active Substance: DESONIDE
  25. DIMENHYDRINATE [Concomitant]
     Active Substance: DIMENHYDRINATE
  26. DIPHENHYDRAMINE [Concomitant]
     Active Substance: DIPHENHYDRAMINE
  27. EPINEPHRINE [Concomitant]
     Active Substance: EPINEPHRINE
  28. FAMCICLOVIR [Concomitant]
     Active Substance: FAMCICLOVIR
  29. FAMOTIDINE [Concomitant]
     Active Substance: FAMOTIDINE
  30. FILGRASTIM [Concomitant]
     Active Substance: FILGRASTIM
  31. FLUCONAZOLE [Concomitant]
     Active Substance: FLUCONAZOLE
  32. FOLIC ACID [Concomitant]
     Active Substance: FOLIC ACID
  33. FUROSEMIDE [Concomitant]
     Active Substance: FUROSEMIDE
  34. HEPARIN CALCIUM [Concomitant]
     Active Substance: HEPARIN CALCIUM
  35. HYDROCORTISONE [Concomitant]
     Active Substance: HYDROCORTISONE
  36. KETAMINE [Concomitant]
     Active Substance: KETAMINE
  37. LANSOPRAZOLE [Concomitant]
     Active Substance: LANSOPRAZOLE
  38. LEVETIRACETAM [Concomitant]
     Active Substance: LEVETIRACETAM
  39. LORAZEPAM [Concomitant]
     Active Substance: LORAZEPAM
  40. MAGNESIUM [Concomitant]
     Active Substance: MAGNESIUM
  41. MELATONIN [Concomitant]
     Active Substance: MELATONIN
  42. METHYLPREDNISOLONE [Concomitant]
     Active Substance: METHYLPREDNISOLONE
  43. METOCLOPRAMIDE [Concomitant]
     Active Substance: METOCLOPRAMIDE
  44. MORPHINE [Concomitant]
     Active Substance: MORPHINE
  45. MUPIROCIN [Concomitant]
     Active Substance: MUPIROCIN
     Route: 061
  46. MYCOPHENOLIC ACID [Concomitant]
     Active Substance: MYCOPHENOLIC ACID
  47. NALOXONE [Concomitant]
     Active Substance: NALOXONE
     Route: 030
  48. NIFEDIPINE [Concomitant]
     Active Substance: NIFEDIPINE
  49. ONDANSETRON [Concomitant]
     Active Substance: ONDANSETRON
  50. PANCRELIPASE [Concomitant]
     Active Substance: PANCRELIPASE
  51. PENTAMIDINE ISETHIONATE [Concomitant]
     Active Substance: PENTAMIDINE ISETHIONATE
  52. PIPERACILLIN AND TAZOBACTAM [Concomitant]
     Active Substance: PIPERACILLIN SODIUM\TAZOBACTAM SODIUM
  53. LAPINE T-LYMPHOCYTE IMMUNE GLOBULIN [Concomitant]
     Active Substance: LAPINE T-LYMPHOCYTE IMMUNE GLOBULIN
  54. RANITIDINE [Concomitant]
     Active Substance: RANITIDINE
  55. ALBUTEROL [Concomitant]
     Active Substance: ALBUTEROL
  56. SALICYLIC ACID [Concomitant]
     Active Substance: SALICYLIC ACID
  57. SULFAMETHOXAZOLE AND TRIMETHOPRIM [Concomitant]
     Active Substance: SULFAMETHOXAZOLE\TRIMETHOPRIM
  58. TACROLIMUS [Concomitant]
     Active Substance: TACROLIMUS
  59. TOBRAMYCIN [Concomitant]
     Active Substance: TOBRAMYCIN
  60. URSODIOL [Concomitant]
     Active Substance: URSODIOL
  61. VANCOMYCIN [Concomitant]
     Active Substance: VANCOMYCIN
  62. ZINC [Concomitant]
     Active Substance: ZINC
  63. FLUDARABINE [Concomitant]
     Active Substance: FLUDARABINE PHOSPHATE

REACTIONS (2)
  - Bone marrow failure [Unknown]
  - Aplastic anaemia [Unknown]
